FAERS Safety Report 5878933-9 (Version None)
Quarter: 2008Q3

REPORT INFORMATION
  Report Type: 
  Country: None (occurrence: None)
  Receive Date: 20080818
  Receipt Date: 20071105
  Transmission Date: 20090109
  Serious: No
  Sender: FDA-Public Use
  Company Number: 20074232

PATIENT
  Sex: Male

DRUGS (9)
  1. LIORESAL [Suspect]
     Indication: MUSCLE SPASTICITY
     Dosage: 825 - 900 MCG, DAILY, INTRATHECAL
     Route: 037
  2. PROTONIX [Concomitant]
  3. DETROL [Concomitant]
  4. ERYTHROMYCIN [Concomitant]
  5. VENOGLOBULIN [Concomitant]
  6. VITAMIN B-12 [Concomitant]
  7. ORAL BACLOFEN [Concomitant]
  8. CLONAZEPAM [Concomitant]
  9. TESTOSTERONE INJECTIONS [Concomitant]

REACTIONS (3)
  - DRUG INEFFECTIVE [None]
  - HYPERTONIA [None]
  - PAIN [None]
